FAERS Safety Report 24444606 (Version 1)
Quarter: 2024Q4

REPORT INFORMATION
  Report Type: Spontaneous
  Country: AU (occurrence: AU)
  Receive Date: 20241016
  Receipt Date: 20241016
  Transmission Date: 20250114
  Serious: Yes (Other)
  Sender: JOHNSON AND JOHNSON
  Company Number: AU-JNJFOC-20241037657

PATIENT

DRUGS (9)
  1. INVEGA SUSTENNA [Suspect]
     Active Substance: PALIPERIDONE PALMITATE
     Indication: Product used for unknown indication
     Route: 030
  2. INVEGA SUSTENNA [Suspect]
     Active Substance: PALIPERIDONE PALMITATE
  3. INVEGA SUSTENNA [Suspect]
     Active Substance: PALIPERIDONE PALMITATE
  4. RISPERIDONE [Suspect]
     Active Substance: RISPERIDONE
     Indication: Product used for unknown indication
  5. ABILIFY [Suspect]
     Active Substance: ARIPIPRAZOLE
     Indication: Product used for unknown indication
  6. OLANZAPINE [Suspect]
     Active Substance: OLANZAPINE
     Indication: Product used for unknown indication
  7. KETAMINE [Concomitant]
     Active Substance: KETAMINE
  8. MORPHINE [Concomitant]
     Active Substance: MORPHINE
  9. MEPERIDINE [Concomitant]
     Active Substance: MEPERIDINE

REACTIONS (5)
  - Poisoning [Unknown]
  - Hepatic neoplasm [Unknown]
  - Blood prolactin increased [Unknown]
  - Cardiovascular disorder [Unknown]
  - Blood pressure abnormal [Unknown]
